FAERS Safety Report 20623419 (Version 2)
Quarter: 2022Q1

REPORT INFORMATION
  Report Type: Spontaneous
  Country: CN (occurrence: CN)
  Receive Date: 20220322
  Receipt Date: 20220331
  Transmission Date: 20220423
  Serious: Yes (Death)
  Sender: FDA-Public Use
  Company Number: CN-BoehringerIngelheim-2022-BI-159645

PATIENT
  Age: 66 Year
  Sex: Female

DRUGS (2)
  1. ALTEPLASE [Suspect]
     Active Substance: ALTEPLASE
     Indication: Thrombolysis
     Route: 042
     Dates: start: 20220311, end: 20220311
  2. ALTEPLASE [Suspect]
     Active Substance: ALTEPLASE
     Indication: Cerebral infarction
     Route: 065

REACTIONS (3)
  - Cerebral haemorrhage [Fatal]
  - Dizziness [Fatal]
  - Vomiting [Fatal]

NARRATIVE: CASE EVENT DATE: 20220311
